FAERS Safety Report 4563427-3 (Version None)
Quarter: 2005Q1

REPORT INFORMATION
  Report Type: 
  Country: None (occurrence: None)
  Receive Date: 20050128
  Receipt Date: 20040503
  Transmission Date: 20050727
  Serious: No
  Sender: FDA-Public Use
  Company Number: US-GLAXOSMITHKLINE-A0509208A

PATIENT
  Age: 60 Year
  Sex: Female

DRUGS (2)
  1. WELLBUTRIN [Suspect]
     Indication: DEPRESSION
     Dosage: 150MG PER DAY
     Route: 048
     Dates: start: 20040415
  2. TRAZODONE HCL [Concomitant]

REACTIONS (3)
  - ABDOMINAL PAIN UPPER [None]
  - ANOREXIA [None]
  - MYALGIA [None]
